FAERS Safety Report 23432367 (Version 5)
Quarter: 2024Q2

REPORT INFORMATION
  Report Type: Report from Study
  Country: US (occurrence: US)
  Receive Date: 20240123
  Receipt Date: 20240604
  Transmission Date: 20240716
  Serious: Yes (Hospitalization)
  Sender: FDA-Public Use
  Company Number: US-INSMED, INC.-2024-00195-US

PATIENT
  Age: 71 Year
  Sex: Female

DRUGS (2)
  1. ARIKAYCE [Suspect]
     Active Substance: AMIKACIN
     Indication: Mycobacterium avium complex infection
     Dosage: 590 MILLIGRAM, QD
     Route: 055
     Dates: end: 202401
  2. ARIKAYCE [Suspect]
     Active Substance: AMIKACIN
     Dosage: UNK, TIW
     Route: 055
     Dates: start: 2024

REACTIONS (6)
  - Syncope [Unknown]
  - Disturbance in attention [Unknown]
  - Aphonia [Unknown]
  - Dysphonia [Unknown]
  - Fatigue [Unknown]
  - Product dose omission issue [Unknown]

NARRATIVE: CASE EVENT DATE: 20240101
